FAERS Safety Report 8503091-1 (Version None)
Quarter: 2012Q3

REPORT INFORMATION
  Report Type: 
  Country: None (occurrence: None)
  Receive Date: 20120711
  Receipt Date: 20120702
  Transmission Date: 20120928
  Serious: Yes (Other)
  Sender: FDA-Public Use
  Company Number: US-ELI_LILLY_AND_COMPANY-US201207002332

PATIENT
  Sex: Female

DRUGS (12)
  1. PROBIOTICS [Concomitant]
     Dosage: UNK, QD
  2. CLONAZEPAM [Concomitant]
     Indication: NERVOUSNESS
     Dosage: UNK, PRN
  3. OMEPRAZOLE [Concomitant]
     Indication: GASTROOESOPHAGEAL REFLUX DISEASE
     Dosage: 20 MG, QD
  4. ZOLPIDEM [Concomitant]
     Indication: INSOMNIA
     Dosage: UNK, PRN
  5. CALCIUM [Concomitant]
     Dosage: 600 MG, BID
  6. FISH OIL [Concomitant]
     Dosage: 1000 MG, BID
  7. FORTEO [Suspect]
     Indication: OSTEOPOROSIS
     Dosage: 20 UG, QD
     Dates: start: 20110701
  8. LISINOPRIL [Concomitant]
     Indication: HYPERTENSION
     Dosage: 2.5 MG, QD
  9. MULTI-VITAMIN [Concomitant]
     Dosage: UNK, QD
  10. CITRACAL [Concomitant]
     Dosage: UNK, QD
  11. METOPROLOL SUCCINATE [Concomitant]
     Indication: HYPERTENSION
     Dosage: 25 MG, BID
  12. ASPIRIN [Concomitant]
     Dosage: 81 MG, QD

REACTIONS (1)
  - MALIGNANT MELANOMA [None]
